FAERS Safety Report 24187494 (Version 1)
Quarter: 2024Q3

REPORT INFORMATION
  Report Type: Spontaneous
  Country: ES (occurrence: ES)
  Receive Date: 20240808
  Receipt Date: 20240808
  Transmission Date: 20241016
  Serious: Yes (Death, Hospitalization)
  Sender: RANBAXY
  Company Number: ES-SUN PHARMACEUTICAL INDUSTRIES LTD-2024RR-461448

PATIENT
  Age: 70 Year
  Sex: Male

DRUGS (2)
  1. GEMCITABINE [Suspect]
     Active Substance: GEMCITABINE
     Indication: Prostate cancer
     Dosage: UNK
     Route: 065
     Dates: start: 20220531
  2. CARBOPLATIN [Suspect]
     Active Substance: CARBOPLATIN
     Indication: Prostate cancer
     Dosage: UNK
     Route: 065
     Dates: start: 20220518

REACTIONS (3)
  - Pancytopenia [Fatal]
  - Neutropenia [Fatal]
  - Rash [Unknown]

NARRATIVE: CASE EVENT DATE: 20220531
